FAERS Safety Report 23093261 (Version 2)
Quarter: 2023Q4

REPORT INFORMATION
  Report Type: Spontaneous
  Country: BR (occurrence: BR)
  Receive Date: 20231022
  Receipt Date: 20231025
  Transmission Date: 20240109
  Serious: Yes (Death, Other)
  Sender: FDA-Public Use
  Company Number: BR-002147023-NVSC2023BR103031

PATIENT
  Age: 48 Year
  Sex: Female
  Weight: 66 kg

DRUGS (5)
  1. KISQALI [Suspect]
     Active Substance: RIBOCICLIB
     Indication: Breast cancer
     Dosage: 200 MG, QD (3 TABLETS) ((3 TABLETS QD 21 DAYS AND PAUSE FOR 7 DAYS)
     Route: 065
     Dates: start: 202303
  2. KISQALI [Suspect]
     Active Substance: RIBOCICLIB
     Dosage: 3 DOSAGE FORM, QD (3 TABLETS A DAY PER 21 DAYS AND PAUSE 7 DAYS) (63 TABLETS)
     Route: 065
     Dates: start: 20230401
  3. LETROZOLE [Suspect]
     Active Substance: LETROZOLE
     Indication: Breast cancer
     Dosage: 2.5 MG, QD (1 TABLET)
     Route: 065
     Dates: start: 202303
  4. XARELTO [Concomitant]
     Active Substance: RIVAROXABAN
     Indication: Embolism
     Dosage: 20 MG, QD (1 TABLET)
     Route: 048
  5. METOPROLOL SUCCINATE [Concomitant]
     Active Substance: METOPROLOL SUCCINATE
     Indication: Autonomic nervous system imbalance
     Dosage: 25 MG, BID (1 TABLET)
     Route: 048

REACTIONS (14)
  - Respiratory failure [Fatal]
  - Metastases to central nervous system [Fatal]
  - Neutropenia [Not Recovered/Not Resolved]
  - Oedema peripheral [Recovering/Resolving]
  - Decreased immune responsiveness [Not Recovered/Not Resolved]
  - Fatigue [Not Recovered/Not Resolved]
  - Abdominal pain upper [Not Recovered/Not Resolved]
  - Aspartate aminotransferase increased [Not Recovered/Not Resolved]
  - Alanine aminotransferase increased [Not Recovered/Not Resolved]
  - Onychoclasis [Recovered/Resolved]
  - Nausea [Recovered/Resolved]
  - Headache [Recovered/Resolved]
  - Alopecia [Recovered/Resolved]
  - Diarrhoea [Recovered/Resolved]

NARRATIVE: CASE EVENT DATE: 20230101
